FAERS Safety Report 7434067-3 (Version None)
Quarter: 2011Q2

REPORT INFORMATION
  Report Type: 
  Country: None (occurrence: None)
  Receive Date: 20110425
  Receipt Date: 20110414
  Transmission Date: 20111010
  Serious: Yes (Other)
  Sender: FDA-Public Use
  Company Number: US-ASTELLAS-2011US001572

PATIENT
  Age: 61 Year
  Sex: Female
  Weight: 75 kg

DRUGS (7)
  1. DIFLUCAN [Suspect]
     Dosage: 400 MG, UID/QD
     Route: 042
     Dates: end: 20110310
  2. SYMBICORT [Concomitant]
     Indication: ASTHMA
     Dosage: 2 PUFFS DF, BID
     Route: 055
  3. DIFLUCAN [Suspect]
     Indication: OESOPHAGEAL INFECTION
     Dosage: 200 MG, UID/QD
     Route: 042
  4. SYMBICORT [Concomitant]
     Indication: CHRONIC OBSTRUCTIVE PULMONARY DISEASE
  5. DIFLUCAN [Suspect]
     Dosage: 400 MG, UID/QD
     Route: 042
     Dates: start: 20110401
  6. MYCAMINE [Suspect]
     Indication: OESOPHAGEAL INFECTION
     Dosage: UNK
     Route: 042
     Dates: start: 20110310, end: 20110320
  7. DIFLUCAN [Suspect]
     Dosage: UNK
     Route: 048

REACTIONS (16)
  - SOMNOLENCE [None]
  - OESOPHAGEAL INFECTION [None]
  - LUNG INFECTION [None]
  - CHILLS [None]
  - BACK PAIN [None]
  - DYSPNOEA [None]
  - HEADACHE [None]
  - CONSTIPATION [None]
  - NAUSEA [None]
  - WEIGHT DECREASED [None]
  - PAIN [None]
  - ASTHENIA [None]
  - FATIGUE [None]
  - FOOD CRAVING [None]
  - DECREASED APPETITE [None]
  - CONFUSIONAL STATE [None]
